FAERS Safety Report 24072945 (Version 1)
Quarter: 2024Q3

REPORT INFORMATION
  Report Type: Spontaneous
  Country: US (occurrence: US)
  Receive Date: 20240710
  Receipt Date: 20240710
  Transmission Date: 20241016
  Serious: No
  Sender: GILEAD
  Company Number: US-GILEAD-2024-0679929

PATIENT
  Sex: Female

DRUGS (1)
  1. CAYSTON [Suspect]
     Active Substance: AZTREONAM
     Indication: Cystic fibrosis
     Dosage: UNK
     Route: 065

REACTIONS (8)
  - Haemorrhage [Unknown]
  - Stomatitis [Unknown]
  - Stomatitis haemorrhagic [Unknown]
  - Pain in extremity [Unknown]
  - Skin mass [Unknown]
  - Contusion [Unknown]
  - Faeces discoloured [Unknown]
  - Diarrhoea [Unknown]
